FAERS Safety Report 7157443-5 (Version None)
Quarter: 2010Q4

REPORT INFORMATION
  Report Type: 
  Country: None (occurrence: None)
  Receive Date: 20101214
  Receipt Date: 20101208
  Transmission Date: 20110411
  Serious: Yes (Death, Hospitalization)
  Sender: FDA-Public Use
  Company Number: A0899566A

PATIENT
  Age: 48 Year
  Sex: Male

DRUGS (6)
  1. VOTRIENT [Suspect]
     Indication: RENAL CANCER
     Dosage: 800MG PER DAY
     Route: 048
     Dates: start: 20100527
  2. CORTEF [Concomitant]
  3. ANDROGEL [Concomitant]
  4. CYMBALTA [Concomitant]
  5. LOVAZA [Concomitant]
  6. LASIX [Concomitant]

REACTIONS (1)
  - DEATH [None]
